FAERS Safety Report 22716586 (Version 5)
Quarter: 2023Q4

REPORT INFORMATION
  Report Type: Report from Study
  Country: DE (occurrence: DE)
  Receive Date: 20230718
  Receipt Date: 20231124
  Transmission Date: 20240110
  Serious: Yes (Other)
  Sender: FDA-Public Use
  Company Number: DE-002147023-PHHY2018DE121336

PATIENT
  Age: 53 Year
  Sex: Male

DRUGS (4)
  1. COSENTYX [Suspect]
     Active Substance: SECUKINUMAB
     Indication: Psoriasis
     Dosage: 300 MG
     Route: 065
     Dates: start: 20150804, end: 20150830
  2. COSENTYX [Suspect]
     Active Substance: SECUKINUMAB
     Dosage: 300 MG
     Route: 065
     Dates: start: 20150831, end: 20151122
  3. COSENTYX [Suspect]
     Active Substance: SECUKINUMAB
     Dosage: 300 MG
     Route: 065
     Dates: start: 20151123, end: 20160327
  4. COSENTYX [Suspect]
     Active Substance: SECUKINUMAB
     Dosage: 300 MG
     Route: 065
     Dates: start: 20160328, end: 20201013

REACTIONS (11)
  - Cellulitis [Recovered/Resolved]
  - Cellulitis [Recovered/Resolved]
  - Psoriatic arthropathy [Unknown]
  - Fungal infection [Recovered/Resolved]
  - Abdominal pain upper [Recovered/Resolved]
  - Hypertension [Recovered/Resolved]
  - Skin papilloma [Not Recovered/Not Resolved]
  - Erysipeloid [Recovered/Resolved]
  - Erysipeloid [Recovered/Resolved]
  - Osteoarthritis [Unknown]
  - Infection [Recovered/Resolved]

NARRATIVE: CASE EVENT DATE: 20170523
